FAERS Safety Report 20677998 (Version 1)
Quarter: 2022Q2

REPORT INFORMATION
  Report Type: Spontaneous
  Country: US (occurrence: US)
  Receive Date: 20220406
  Receipt Date: 20220406
  Transmission Date: 20220721
  Serious: No
  Sender: FDA-Public Use
  Company Number: US-ALLERGAN-2201543US

PATIENT
  Sex: Female

DRUGS (2)
  1. QULIPTA [Suspect]
     Active Substance: ATOGEPANT
     Indication: Cluster headache
     Dosage: 1 DF, QD (STATED 100MG BUT WASN^T SURE OF DOSAGE)
     Route: 048
  2. FLECAINIDE [Concomitant]
     Active Substance: FLECAINIDE
     Indication: Atrial fibrillation
     Dosage: 1 DF, BID (ONE TABLET IN MORNING AND ONE IN EVENING)
     Route: 048

REACTIONS (2)
  - Insomnia [Not Recovered/Not Resolved]
  - Basedow^s disease [Not Recovered/Not Resolved]

NARRATIVE: CASE EVENT DATE: 20220101
